FAERS Safety Report 4285420-0 (Version None)
Quarter: 2004Q1

REPORT INFORMATION
  Report Type: 
  Country: None (occurrence: None)
  Receive Date: 20040203
  Receipt Date: 20040203
  Transmission Date: 20041129
  Serious: Yes (Hospitalization)
  Sender: FDA-Public Use
  Company Number: None

PATIENT
  Sex: Female

DRUGS (15)
  1. OMNIPAQUE 140 [Suspect]
     Indication: COMPUTERISED TOMOGRAM
     Dosage: 150 ML IV X 1
     Route: 042
     Dates: start: 20030823
  2. PREDNISONE [Concomitant]
  3. ENALAPRIL [Concomitant]
  4. OXYBUTININ [Concomitant]
  5. LANSOPRAZOLE [Concomitant]
  6. FUROSEMIDE [Concomitant]
  7. FERROUS SULFATE TAB [Concomitant]
  8. DOCUSATE SODUIM [Concomitant]
  9. CARVEDILOL [Concomitant]
  10. SERTRALINE HCL [Concomitant]
  11. SSI [Concomitant]
  12. METOCLOPRAMIDE [Concomitant]
  13. FENTANYL [Concomitant]
  14. ALBUTEROL [Concomitant]
  15. MORPHINE [Concomitant]

REACTIONS (1)
  - BLOOD CREATININE INCREASED [None]
